FAERS Safety Report 15647811 (Version 2)
Quarter: 2019Q2

REPORT INFORMATION
  Report Type: Spontaneous
  Country: US (occurrence: US)
  Receive Date: 20181122
  Receipt Date: 20190510
  Transmission Date: 20190711
  Serious: Yes (Hospitalization)
  Sender: FDA-Public Use
  Company Number: US-SUN PHARMACEUTICAL INDUSTRIES LTD-2018R1-191809

PATIENT
  Age: 27 Year
  Sex: Male

DRUGS (3)
  1. METHAMPHETAMINE [Suspect]
     Active Substance: METHAMPHETAMINE
     Indication: BACK PAIN
     Dosage: UNK
     Route: 065
  2. ACETAMINOPHEN. [Suspect]
     Active Substance: ACETAMINOPHEN
     Indication: BACK PAIN
     Dosage: UNK
     Route: 065
  3. GUAIFENESIN + DEXTROMETHORPHAN [Suspect]
     Active Substance: DEXTROMETHORPHAN\GUAIFENESIN
     Indication: PRODUCT USED FOR UNKNOWN INDICATION
     Dosage: UNK
     Route: 048

REACTIONS (11)
  - Nystagmus [Unknown]
  - Analgesic drug level increased [Unknown]
  - Metabolic acidosis [Unknown]
  - Serotonin syndrome [Unknown]
  - Hyperchloraemia [Unknown]
  - Aspartate aminotransferase increased [Unknown]
  - Mood altered [Unknown]
  - Tachycardia [Unknown]
  - Toxicity to various agents [Unknown]
  - Drug abuse [Unknown]
  - Clonus [Unknown]
